FAERS Safety Report 6540366-X (Version None)
Quarter: 2010Q1

REPORT INFORMATION
  Report Type: 
  Country: None (occurrence: None)
  Receive Date: 20100115
  Receipt Date: 20100105
  Transmission Date: 20100710
  Serious: Yes (Death)
  Sender: FDA-Public Use
  Company Number: US-MERCK-1001USA00913

PATIENT
  Age: 34 Year
  Sex: Male

DRUGS (10)
  1. ZOCOR [Suspect]
     Route: 048
  2. ZESTRIL [Suspect]
     Route: 048
  3. ATENOLOL AND CHLORTHALIDONE [Suspect]
     Route: 048
  4. COCAINE [Suspect]
     Route: 048
  5. ALCOHOL [Suspect]
     Route: 048
  6. PIOGLITAZONE HYDROCHLORIDE [Suspect]
     Route: 048
  7. BACLOFEN [Suspect]
     Route: 048
  8. CEPHALEXIN [Suspect]
     Route: 048
  9. INSULIN [Suspect]
     Route: 048
  10. [THERAPY UNSPECIFIED] [Suspect]
     Indication: ANTIDEPRESSANT THERAPY
     Route: 065

REACTIONS (2)
  - COMPLETED SUICIDE [None]
  - DRUG TOXICITY [None]
